FAERS Safety Report 24527812 (Version 2)
Quarter: 2024Q4

REPORT INFORMATION
  Report Type: Spontaneous
  Country: US (occurrence: US)
  Receive Date: 20241021
  Receipt Date: 20241121
  Transmission Date: 20250115
  Serious: No
  Sender: ABBVIE
  Company Number: US-ABBVIE-5963686

PATIENT
  Age: 65 Year
  Sex: Female
  Weight: 36 kg

DRUGS (3)
  1. BOTOX [Suspect]
     Active Substance: ONABOTULINUMTOXINA
     Indication: Migraine
     Dosage: TIME INTERVAL: AS NECESSARY: THERAPEUTIC?EVERY 3 MONTHS
     Route: 065
     Dates: start: 202402, end: 202402
  2. BOTOX [Suspect]
     Active Substance: ONABOTULINUMTOXINA
     Indication: Migraine
     Dosage: TIME INTERVAL: AS NECESSARY: THERAPEUTIC?EVERY 3 MONTHS
     Route: 065
     Dates: start: 202405, end: 202405
  3. BOTOX [Suspect]
     Active Substance: ONABOTULINUMTOXINA
     Indication: Migraine
     Dosage: TIME INTERVAL: AS NECESSARY: THERAPEUTIC?EVERY 3 MONTHS
     Route: 065
     Dates: start: 202408, end: 202408

REACTIONS (4)
  - Oesophageal motility disorder [Recovering/Resolving]
  - Oesophageal hypomotility [Unknown]
  - Dysphagia [Recovering/Resolving]
  - Weight decreased [Unknown]

NARRATIVE: CASE EVENT DATE: 20240101
